FAERS Safety Report 6882470-2 (Version None)
Quarter: 2010Q3

REPORT INFORMATION
  Report Type: 
  Country: None (occurrence: None)
  Receive Date: 20100728
  Receipt Date: 20100728
  Transmission Date: 20110219
  Serious: Yes (Hospitalization)
  Sender: FDA-Public Use
  Company Number: None

PATIENT
  Sex: Male
  Weight: 101.5 kg

DRUGS (2)
  1. CISPLATIN [Suspect]
     Dosage: 184 MG
  2. ETOPOSIDE [Suspect]
     Dosage: 690 MG

REACTIONS (3)
  - HAEMOPTYSIS [None]
  - PULMONARY ARTERY THROMBOSIS [None]
  - PULMONARY EMBOLISM [None]
